FAERS Safety Report 5168904-2 (Version None)
Quarter: 2006Q4

REPORT INFORMATION
  Report Type: 
  Country: None (occurrence: None)
  Receive Date: 20061211
  Receipt Date: 20061204
  Transmission Date: 20070319
  Serious: Yes (Other)
  Sender: FDA-Public Use
  Company Number: PHFR2006GB03556

PATIENT
  Age: 41 Year
  Sex: Female
  Weight: 62 kg

DRUGS (5)
  1. ZOMETA [Suspect]
     Dosage: 4MG
     Route: 042
     Dates: start: 20060425, end: 20060613
  2. DEXAMETHASONE [Concomitant]
     Dosage: 8 MG, BID
     Route: 048
     Dates: start: 20060424
  3. HERCEPTIN [Concomitant]
     Dosage: 120 MG, QW
     Route: 042
     Dates: start: 20060425
  4. TAXOTERE [Concomitant]
     Dosage: 160 MG, TIW
     Route: 042
     Dates: start: 20060425
  5. ANTIEMETICS [Concomitant]
     Route: 048

REACTIONS (1)
  - OSTEONECROSIS [None]
